FAERS Safety Report 11738490 (Version 1)
Quarter: 2015Q4

REPORT INFORMATION
  Report Type: Spontaneous
  Country: US (occurrence: US)
  Receive Date: 20151110
  Receipt Date: 20151110
  Transmission Date: 20160304
  Serious: No
  Sender: FDA-Public Use
  Company Number: US-ELI_LILLY_AND_COMPANY-US201208001217

PATIENT
  Age: 80 Year
  Sex: Female

DRUGS (13)
  1. FUROSEMIDE. [Concomitant]
     Active Substance: FUROSEMIDE
     Dosage: 40 MG, UNK
  2. VITAMIN D [Concomitant]
     Active Substance: CHOLECALCIFEROL
  3. FORTEO [Suspect]
     Active Substance: TERIPARATIDE
     Dosage: 20 UG, QD
     Route: 065
  4. CENTRUM SILVER                     /02363801/ [Concomitant]
     Active Substance: MINERALS\VITAMINS
     Dosage: UNK, QD
  5. FORTEO [Suspect]
     Active Substance: TERIPARATIDE
     Dosage: 20 UG, QD
     Route: 065
  6. CALCIUM [Concomitant]
     Active Substance: CALCIUM
  7. FERRO SULFAT [Concomitant]
     Dosage: 65 MG, UNK
  8. ARICEPT [Concomitant]
     Active Substance: DONEPEZIL HYDROCHLORIDE
     Dosage: 5 MG, UNK
  9. FORTEO [Suspect]
     Active Substance: TERIPARATIDE
     Indication: OSTEOPOROSIS
     Dosage: 20 UG, QD
     Route: 065
     Dates: start: 201206
  10. KLOR-CON [Concomitant]
     Active Substance: POTASSIUM CHLORIDE
     Dosage: 10 MEQ, UNK
  11. JANTOVEN [Concomitant]
     Active Substance: WARFARIN SODIUM
  12. FISH OIL [Concomitant]
     Active Substance: FISH OIL
  13. VITAMIN D3 [Concomitant]
     Active Substance: CHOLECALCIFEROL
     Dosage: 2000 IU, UNK

REACTIONS (9)
  - Thinking abnormal [Unknown]
  - Accidental exposure to product [Unknown]
  - Anxiety [Unknown]
  - Injection site haemorrhage [Unknown]
  - Confusional state [Unknown]
  - Memory impairment [Unknown]
  - Stress [Unknown]
  - Mood altered [Unknown]
  - Overdose [Unknown]

NARRATIVE: CASE EVENT DATE: 2012
